FAERS Safety Report 5346156-8 (Version None)
Quarter: 2007Q2

REPORT INFORMATION
  Report Type: 
  Country: None (occurrence: None)
  Receive Date: 20070605
  Receipt Date: 20070601
  Transmission Date: 20071010
  Serious: Yes (Death, Hospitalization)
  Sender: FDA-Public Use
  Company Number: FR-ASTRAZENECA-2007CG00847

PATIENT
  Age: 45 Year
  Sex: Female

DRUGS (9)
  1. NAROPEINE [Suspect]
     Indication: LOCAL ANAESTHESIA
     Route: 053
     Dates: start: 20070212, end: 20070212
  2. NEXIUM [Concomitant]
     Route: 048
  3. LASIX [Concomitant]
     Route: 048
  4. DOMPERIDONE [Concomitant]
     Route: 048
  5. KARDEGIC [Concomitant]
     Route: 048
  6. MIMPARA [Concomitant]
     Route: 048
  7. SPASFON-LYOC [Concomitant]
     Route: 048
  8. UN-ALFA [Concomitant]
  9. ARANESP [Concomitant]

REACTIONS (3)
  - ANAPHYLACTIC SHOCK [None]
  - CARDIAC ARREST [None]
  - CONVULSION [None]
